FAERS Safety Report 6580131-0 (Version None)
Quarter: 2010Q1

REPORT INFORMATION
  Report Type: 
  Country: None (occurrence: None)
  Receive Date: 20100212
  Receipt Date: 20100204
  Transmission Date: 20100710
  Serious: Yes (Other)
  Sender: FDA-Public Use
  Company Number: CA-JNJFOC-20100202895

PATIENT
  Sex: Female
  Weight: 57.61 kg

DRUGS (5)
  1. REMICADE [Suspect]
     Indication: CROHN'S DISEASE
     Route: 042
  2. REMICADE [Suspect]
     Route: 042
  3. REMICADE [Suspect]
     Route: 042
  4. CIPRO [Concomitant]
     Indication: CROHN'S DISEASE
  5. PAXIL [Concomitant]
     Indication: DEPRESSION

REACTIONS (3)
  - DEAFNESS [None]
  - HYPOKINESIA [None]
  - PSORIASIS [None]
